FAERS Safety Report 12632586 (Version 2)
Quarter: 2016Q3

REPORT INFORMATION
  Report Type: Spontaneous
  Country: US (occurrence: US)
  Receive Date: 20160808
  Receipt Date: 20160808
  Transmission Date: 20161109
  Serious: No
  Sender: FDA-Public Use
  Company Number: US-BEH-2015056124

PATIENT
  Sex: Female
  Weight: 75 kg

DRUGS (28)
  1. DIAZEPAM. [Concomitant]
     Active Substance: DIAZEPAM
  2. DIPHENHYDRAMINE. [Concomitant]
     Active Substance: DIPHENHYDRAMINE
  3. ACETAMINOPHEN. [Concomitant]
     Active Substance: ACETAMINOPHEN
  4. CHEWABLE MULTI VITAMIN [Concomitant]
  5. CLOBETASOL [Concomitant]
     Active Substance: CLOBETASOL
  6. PROPIONATE [Concomitant]
  7. RIZATRIPTAN. [Concomitant]
     Active Substance: RIZATRIPTAN
  8. MIRENA [Concomitant]
     Active Substance: LEVONORGESTREL
  9. SPIRIVA [Concomitant]
     Active Substance: TIOTROPIUM BROMIDE MONOHYDRATE
  10. ACARBOSE. [Concomitant]
     Active Substance: ACARBOSE
  11. VENTOLIN [Concomitant]
     Active Substance: ALBUTEROL SULFATE
  12. ALBUTEROL SULFATE. [Concomitant]
     Active Substance: ALBUTEROL SULFATE
  13. ONDASETRON ODT [Concomitant]
  14. HIZENTRA [Suspect]
     Active Substance: HUMAN IMMUNOGLOBULIN G
     Indication: HYPOGAMMAGLOBULINAEMIA
     Dosage: 4GM 20 ML VIAL
     Route: 058
  15. RABEPRAZOLE [Concomitant]
     Active Substance: RABEPRAZOLE
  16. ADVAIR HFA [Concomitant]
     Active Substance: FLUTICASONE PROPIONATE\SALMETEROL XINAFOATE
  17. DESONIDE. [Concomitant]
     Active Substance: DESONIDE
  18. BENZONATATE. [Concomitant]
     Active Substance: BENZONATATE
  19. ACIPHEX [Concomitant]
     Active Substance: RABEPRAZOLE SODIUM
  20. ZYRTEC [Concomitant]
     Active Substance: CETIRIZINE HYDROCHLORIDE
  21. IPRATROPIUM-ALBUTEROL [Concomitant]
     Active Substance: ALBUTEROL\IPRATROPIUM
  22. QVAR [Concomitant]
     Active Substance: BECLOMETHASONE DIPROPIONATE
  23. LIDOCAINE. [Concomitant]
     Active Substance: LIDOCAINE
  24. EPIPEN [Concomitant]
     Active Substance: EPINEPHRINE
  25. FUROSEMIDE. [Concomitant]
     Active Substance: FUROSEMIDE
  26. VITAMIN C 500 [Concomitant]
  27. KETOCONAZOLE. [Concomitant]
     Active Substance: KETOCONAZOLE
  28. VALTREX [Concomitant]
     Active Substance: VALACYCLOVIR HYDROCHLORIDE

REACTIONS (3)
  - Energy increased [Unknown]
  - Asthenia [Unknown]
  - Fatigue [Unknown]
